FAERS Safety Report 17964433 (Version 1)
Quarter: 2020Q2

REPORT INFORMATION
  Report Type: Spontaneous
  Country: US (occurrence: US)
  Receive Date: 20200630
  Receipt Date: 20200630
  Transmission Date: 20200714
  Serious: Yes (Hospitalization)
  Sender: FDA-Public Use
  Company Number: US-LOREAL USA PRODUCTS, INC.-2020LOR00008

PATIENT
  Sex: Female

DRUGS (1)
  1. LANCOME PARIS SKIN FEELS GOOD BROAD SPECTRUM SPF 23 SUNSN HYDR SKIN TINT HLT GLW [Suspect]
     Active Substance: OCTINOXATE
     Dosage: UNK
     Dates: start: 20200612, end: 20200614

REACTIONS (3)
  - Lip swelling [Recovering/Resolving]
  - Dry skin [Recovering/Resolving]
  - Swelling face [Recovering/Resolving]

NARRATIVE: CASE EVENT DATE: 20200612
